FAERS Safety Report 9787934 (Version 2)
Quarter: 2014Q1

REPORT INFORMATION
  Report Type: Spontaneous
  Country: GB (occurrence: GB)
  Receive Date: 20131230
  Receipt Date: 20140106
  Transmission Date: 20141002
  Serious: Yes (Hospitalization, Other)
  Sender: FDA-Public Use
  Company Number: GB-DRREDDYS-GER/UKI/13/0036679

PATIENT
  Age: 18 Year
  Sex: Female

DRUGS (2)
  1. FEXOFENADINE [Suspect]
     Indication: URTICARIA
     Route: 048
     Dates: start: 20131128
  2. RANITIDINE [Concomitant]
     Indication: PRODUCT USED FOR UNKNOWN INDICATION

REACTIONS (2)
  - Prescribed overdose [Unknown]
  - Grand mal convulsion [Unknown]
